FAERS Safety Report 14567089 (Version 1)
Quarter: 2018Q1

REPORT INFORMATION
  Report Type: Spontaneous
  Country: IT (occurrence: IT)
  Receive Date: 20180223
  Receipt Date: 20180223
  Transmission Date: 20180509
  Serious: Yes (Congenital Anomaly, Other)
  Sender: FDA-Public Use
  Company Number: IT-G+W LABS-GW2018IT000016

PATIENT

DRUGS (1)
  1. ACETAMINOPHEN. [Suspect]
     Active Substance: ACETAMINOPHEN
     Dosage: UNK
     Route: 065

REACTIONS (9)
  - Cardiomyopathy [Recovered/Resolved]
  - Right ventricular dysfunction [Recovered/Resolved]
  - Aspartate aminotransferase increased [Recovered/Resolved]
  - Troponin increased [Recovered/Resolved]
  - Cardiac murmur [Recovered/Resolved]
  - Pulmonary artery stenosis [Recovered/Resolved]
  - Maternal drugs affecting foetus [Recovered/Resolved]
  - Ductus arteriosus premature closure [Recovered/Resolved]
  - Neonatal respiratory distress syndrome [Recovered/Resolved]
